FAERS Safety Report 17426691 (Version 4)
Quarter: 2021Q3

REPORT INFORMATION
  Report Type: Spontaneous
  Country: US (occurrence: US)
  Receive Date: 20200217
  Receipt Date: 20210913
  Transmission Date: 20211014
  Serious: Yes (Other)
  Sender: FDA-Public Use
  Company Number: US-PFIZER INC-2020069659

PATIENT
  Age: 59 Year
  Sex: Female
  Weight: 77.11 kg

DRUGS (1)
  1. CHANTIX [Suspect]
     Active Substance: VARENICLINE TARTRATE
     Indication: SMOKING CESSATION THERAPY
     Dosage: ONE PILL, MAYBE IT IS JUST ONE PILL A DAY OR MAYBE IT IS TWO
     Dates: start: 202001

REACTIONS (3)
  - Uterine leiomyoma [Unknown]
  - Endometrial thickening [Unknown]
  - Neoplasm malignant [Unknown]
